FAERS Safety Report 5198885-7 (Version None)
Quarter: 2006Q4

REPORT INFORMATION
  Report Type: 
  Country: None (occurrence: None)
  Receive Date: 20060921
  Receipt Date: 20051031
  Transmission Date: 20070319
  Serious: Yes (Other)
  Sender: FDA-Public Use
  Company Number: 2005068207

PATIENT
  Age: 48 Year
  Sex: Female
  Weight: 56.6996 kg

DRUGS (5)
  1. ZYRTEC [Suspect]
     Indication: PSORIASIS
     Dates: start: 20050416, end: 20050427
  2. ZYRTEC [Suspect]
     Indication: SEBORRHOEIC DERMATITIS
     Dates: start: 20050416, end: 20050427
  3. KEPPRA [Concomitant]
  4. ALESSE [Concomitant]
  5. ZOLOFT [Concomitant]

REACTIONS (1)
  - CONVULSION [None]
